FAERS Safety Report 10157474 (Version 2)
Quarter: 2014Q2

REPORT INFORMATION
  Report Type: Spontaneous
  Country: US (occurrence: US)
  Receive Date: 20140507
  Receipt Date: 20140507
  Transmission Date: 20141212
  Serious: Yes (Other)
  Sender: FDA-Public Use
  Company Number: US-BAYER-2014-037950

PATIENT
  Age: 54 Year
  Sex: Female
  Weight: 95 kg

DRUGS (9)
  1. PHILLIPS^ COLON HEALTH [Suspect]
     Indication: DYSPEPSIA
     Dosage: 1 DF, QD
     Dates: start: 20140301, end: 20140308
  2. LITHIUM [Concomitant]
     Indication: BIPOLAR DISORDER
     Dosage: 300 MG, QID
  3. STELAZINE [Concomitant]
     Dosage: 10 MG, QD
  4. TOPROL [Concomitant]
     Indication: BLOOD PRESSURE
     Dosage: 50 MG, QD
  5. SYNTHROID [Concomitant]
     Indication: THYROID DISORDER
     Dosage: 15 MG, QD
  6. VITAMIN C [Concomitant]
     Dosage: 500 MG, QD
  7. CENTRUM SILVER [Concomitant]
  8. BAYER GENUINE ASPIRIN ORIGINAL STRENGTH [Concomitant]
     Indication: ISCHAEMIC HEART DISEASE PROPHYLAXIS
     Dosage: 1 DF, QD
     Route: 048
  9. FISH OIL [Concomitant]
     Dosage: 1200 MG, QD

REACTIONS (12)
  - Dyspnoea [Recovered/Resolved]
  - Abdominal distension [Recovered/Resolved]
  - Constipation [Recovered/Resolved]
  - Chest discomfort [Recovered/Resolved]
  - Eating disorder [Recovered/Resolved]
  - Back pain [Recovered/Resolved]
  - Facial spasm [Recovered/Resolved]
  - Abdominal pain [Recovered/Resolved]
  - Anxiety [Recovered/Resolved]
  - Musculoskeletal chest pain [Recovered/Resolved]
  - Chest pain [Recovered/Resolved]
  - Musculoskeletal disorder [Recovered/Resolved]
